FAERS Safety Report 9150075 (Version 1)
Quarter: 2013Q1

REPORT INFORMATION
  Report Type: Spontaneous
  Country: US (occurrence: None)
  Receive Date: 20130304
  Receipt Date: 20130304
  Transmission Date: 20140127
  Serious: Yes (Other)
  Sender: FDA-Public Use
  Company Number: None

PATIENT
  Age: 39 Year
  Sex: Female
  Weight: 91.17 kg

DRUGS (1)
  1. MICONAZOLE [Suspect]
     Indication: VULVOVAGINAL MYCOTIC INFECTION
     Dosage: 1 DOSE DAILY VAG
     Route: 067
     Dates: start: 20130225, end: 20130225

REACTIONS (2)
  - Reaction to drug excipients [None]
  - Product substitution issue [None]
